FAERS Safety Report 21879820 (Version 1)
Quarter: 2023Q1

REPORT INFORMATION
  Report Type: Spontaneous
  Country: AT (occurrence: AT)
  Receive Date: 20230118
  Receipt Date: 20230118
  Transmission Date: 20230418
  Serious: Yes (Other)
  Sender: FDA-Public Use
  Company Number: AT-TEVA-2022-AT-2829556

PATIENT
  Age: 7 Decade
  Sex: Male

DRUGS (8)
  1. LENALIDOMIDE [Suspect]
     Active Substance: LENALIDOMIDE
     Indication: Plasma cell myeloma recurrent
     Dosage: 15 MILLIGRAM (REDUCED TO 15 MG)
     Route: 048
     Dates: start: 202112
  2. LENALIDOMIDE [Suspect]
     Active Substance: LENALIDOMIDE
     Dosage: 20 MILLIGRAM (REDUCED  TO 20 MG)
     Route: 048
     Dates: start: 202111
  3. LENALIDOMIDE [Suspect]
     Active Substance: LENALIDOMIDE
     Dosage: UNK
     Route: 048
     Dates: start: 202106
  4. IXAZOMIB [Suspect]
     Active Substance: IXAZOMIB
     Indication: Plasma cell myeloma recurrent
     Dosage: 3 MILLIGRAM (3 MG)
     Route: 048
     Dates: start: 202112
  5. IXAZOMIB [Suspect]
     Active Substance: IXAZOMIB
     Dosage: 3 MILLIGRAM (REDUCED TO 3 MG)
     Route: 048
     Dates: start: 202111
  6. IXAZOMIB [Suspect]
     Active Substance: IXAZOMIB
     Dosage: UNK
     Route: 048
     Dates: start: 202106
  7. DEXAMETHASONE [Suspect]
     Active Substance: DEXAMETHASONE
     Indication: Plasma cell myeloma recurrent
     Dosage: UNK (REDUCED TO 10 MG)
     Route: 048
     Dates: start: 202112
  8. DEXAMETHASONE [Suspect]
     Active Substance: DEXAMETHASONE
     Dosage: UNK (REDUCED TO 20 MG)
     Route: 048
     Dates: start: 202106

REACTIONS (6)
  - Dyspnoea exertional [Recovering/Resolving]
  - Listless [Recovering/Resolving]
  - Wheelchair user [Recovered/Resolved]
  - Thrombocytopenia [Recovering/Resolving]
  - Oedema peripheral [Recovering/Resolving]
  - Hypotension [Unknown]
